FAERS Safety Report 6072296-4 (Version None)
Quarter: 2009Q1

REPORT INFORMATION
  Report Type: 
  Country: None (occurrence: None)
  Receive Date: 20090114
  Receipt Date: 20090114
  Transmission Date: 20090719
  Serious: Yes (Life-Threatening, Other)
  Sender: FDA-Public Use
  Company Number: None

PATIENT
  Sex: Female

DRUGS (2)
  1. ROCHE LABORATORIES, INC FUZEON (ENFUVIRTIDE) [Suspect]
     Dates: start: 20080714
  2. . [Concomitant]

REACTIONS (3)
  - ACCIDENTAL NEEDLE STICK [None]
  - DEVICE FAILURE [None]
  - IMPAIRED WORK ABILITY [None]
